FAERS Safety Report 15265946 (Version 1)
Quarter: 2018Q3

REPORT INFORMATION
  Report Type: Spontaneous
  Country: US (occurrence: US)
  Receive Date: 20180810
  Receipt Date: 20180810
  Transmission Date: 20181010
  Serious: No
  Sender: FDA-Public Use
  Company Number: US-GLAXOSMITHKLINE-US2018137801

PATIENT
  Age: 72 Year
  Sex: Male

DRUGS (1)
  1. EXCEDRIN [Suspect]
     Active Substance: ACETAMINOPHEN\ASPIRIN\CAFFEINE
     Indication: SINUS HEADACHE
     Dosage: 3 DF, BID

REACTIONS (2)
  - Extra dose administered [Unknown]
  - Product use in unapproved indication [Unknown]
